FAERS Safety Report 11216574 (Version 3)
Quarter: 2018Q3

REPORT INFORMATION
  Report Type: Spontaneous
  Country: JP (occurrence: JP)
  Receive Date: 20150624
  Receipt Date: 20180816
  Transmission Date: 20181010
  Serious: Yes (Other)
  Sender: FDA-Public Use
  Company Number: JP-ABBVIE-15P-087-1413647-00

PATIENT

DRUGS (1)
  1. VALPROIC ACID. [Suspect]
     Active Substance: VALPROIC ACID
     Indication: EPILEPSY
     Route: 065

REACTIONS (8)
  - Beta 2 microglobulin urine [Unknown]
  - Fanconi syndrome [Unknown]
  - Carnitine decreased [Unknown]
  - Cystatin C increased [Unknown]
  - Renal tubular disorder [Unknown]
  - Glycosuria [Recovering/Resolving]
  - Proteinuria [Unknown]
  - Haematuria [Unknown]
